FAERS Safety Report 5571044-1 (Version None)
Quarter: 2007Q4

REPORT INFORMATION
  Report Type: 
  Country: None (occurrence: None)
  Receive Date: 20071221
  Receipt Date: 20071210
  Transmission Date: 20080405
  Serious: Yes (Other)
  Sender: FDA-Public Use
  Company Number: GB-ASTRAZENECA-2007GB02528

PATIENT

DRUGS (2)
  1. NEXIUM [Suspect]
     Indication: BARRETT'S OESOPHAGUS
     Route: 048
  2. ASPIRIN [Suspect]
     Indication: BARRETT'S OESOPHAGUS

REACTIONS (2)
  - DEPRESSED MOOD [None]
  - SUICIDE ATTEMPT [None]
